FAERS Safety Report 20867375 (Version 1)
Quarter: 2022Q2

REPORT INFORMATION
  Report Type: Spontaneous
  Country: US (occurrence: None)
  Receive Date: 20220524
  Receipt Date: 20220524
  Transmission Date: 20220721
  Serious: Yes (Hospitalization)
  Sender: FDA-Public Use
  Company Number: None

PATIENT
  Age: 21 Year
  Sex: Male
  Weight: 115 kg

DRUGS (22)
  1. ONCASPAR [Suspect]
     Active Substance: PEGASPARGASE
     Dates: end: 20220520
  2. CYCLOPHOSPHAMIDE [Suspect]
     Active Substance: CYCLOPHOSPHAMIDE
     Dates: end: 20220321
  3. CYTARABINE [Suspect]
     Active Substance: CYTARABINE
     Dates: end: 20220505
  4. DEXAMETHASONE [Suspect]
     Active Substance: DEXAMETHASONE
     Dates: end: 20220426
  5. METHOTREXATE [Suspect]
     Active Substance: METHOTREXATE
     Dates: end: 20220420
  6. VINCRISTINE SULFATE [Suspect]
     Active Substance: VINCRISTINE SULFATE
     Dates: end: 20220516
  7. ACETAMINOPHEN [Concomitant]
     Active Substance: ACETAMINOPHEN
  8. ACYCLOVIR [Concomitant]
     Active Substance: ACYCLOVIR
  9. BACTRIM DS [Concomitant]
     Active Substance: SULFAMETHOXAZOLE\TRIMETHOPRIM
  10. CIPROFLOXACIN [Concomitant]
     Active Substance: CIPROFLOXACIN
  11. FAMOTIDINE [Concomitant]
     Active Substance: FAMOTIDINE
  12. FENOFIBRATE [Concomitant]
     Active Substance: FENOFIBRATE
  13. FLUCONAZOLE [Concomitant]
     Active Substance: FLUCONAZOLE
  14. Hydrocodone/APAP 5 [Concomitant]
  15. HYDROMORPHONE [Concomitant]
     Active Substance: HYDROMORPHONE
  16. SENOKOT [Concomitant]
     Active Substance: SENNOSIDES
  17. TRIMETHOBENZAMIDE [Concomitant]
     Active Substance: TRIMETHOBENZAMIDE
  18. URSODIOL [Concomitant]
     Active Substance: URSODIOL
  19. Glucagon recon [Concomitant]
  20. Glucose chew [Concomitant]
  21. INSULIN NOS [Concomitant]
     Active Substance: INSULIN NOS
  22. MELATONIN [Concomitant]
     Active Substance: MELATONIN

REACTIONS (9)
  - Cholelithiasis [None]
  - Cholelithiasis [None]
  - Chills [None]
  - Abdominal pain [None]
  - Abdominal pain upper [None]
  - Nausea [None]
  - Vomiting [None]
  - Dyspnoea exertional [None]
  - Pleuritic pain [None]

NARRATIVE: CASE EVENT DATE: 20220522
